FAERS Safety Report 17813431 (Version 1)
Quarter: 2020Q2

REPORT INFORMATION
  Report Type: Spontaneous
  Country: CN (occurrence: CN)
  Receive Date: 20200521
  Receipt Date: 20200521
  Transmission Date: 20200714
  Serious: Yes (Hospitalization)
  Sender: FDA-Public Use
  Company Number: CN-CELGENEUS-CHN-20200504867

PATIENT
  Age: 31 Year
  Sex: Male
  Weight: 60 kg

DRUGS (2)
  1. AZACITIDINE. [Suspect]
     Active Substance: AZACITIDINE
     Indication: ACUTE MYELOID LEUKAEMIA
     Dosage: 100 MILLIGRAM
     Route: 058
     Dates: start: 20200424, end: 20200428
  2. AZACITIDINE. [Suspect]
     Active Substance: AZACITIDINE
     Indication: LEUKAEMIA

REACTIONS (1)
  - Granulocytopenia [Recovering/Resolving]

NARRATIVE: CASE EVENT DATE: 20200426
